FAERS Safety Report 6255009-2 (Version None)
Quarter: 2009Q3

REPORT INFORMATION
  Report Type: 
  Country: None (occurrence: None)
  Receive Date: 20090702
  Receipt Date: 20090625
  Transmission Date: 20100115
  Serious: Yes (Hospitalization)
  Sender: FDA-Public Use
  Company Number: GB-MERCK-0906GBR00116

PATIENT
  Age: 43 Year
  Sex: Female
  Weight: 164 kg

DRUGS (23)
  1. PRINIVIL [Suspect]
     Route: 048
     Dates: end: 20080101
  2. RIMONABANT [Suspect]
     Indication: OBESITY
     Route: 048
     Dates: start: 20070629, end: 20081013
  3. IRBESARTAN [Suspect]
     Route: 048
     Dates: end: 20081013
  4. SPIRONOLACTONE [Suspect]
     Route: 048
     Dates: end: 20081013
  5. ASPIRIN [Concomitant]
     Indication: CARDIAC DISORDER
     Route: 065
  6. ATENOLOL [Concomitant]
     Route: 065
  7. ATORVASTATIN [Concomitant]
     Route: 065
  8. BISOPROLOL [Concomitant]
     Route: 065
  9. CODEINE [Concomitant]
     Indication: MUSCLE SPASMS
     Route: 065
  10. DILTIAZEM HYDROCHLORIDE [Concomitant]
     Route: 065
  11. FUROSEMIDE [Concomitant]
     Route: 065
  12. NITROGLYCERIN [Concomitant]
     Indication: CARDIAC DISORDER
     Route: 065
  13. ISOSORBIDE MONONITRATE [Concomitant]
     Route: 065
  14. LIDOCAINE [Concomitant]
     Route: 065
  15. NITRAZEPAM [Concomitant]
     Route: 065
  16. OMEGA-3 ACID ETHYL ESTERS [Concomitant]
     Route: 048
  17. OMEGA-3 MARINE TRIGLYCERIDES [Concomitant]
     Route: 065
  18. OMEPRAZOLE [Concomitant]
     Route: 065
  19. ACETAMINOPHEN [Concomitant]
     Indication: MUSCLE SPASMS
     Route: 065
  20. QUININE SULFATE [Concomitant]
     Route: 065
  21. SOLIFENACIN SUCCINATE [Concomitant]
     Route: 048
  22. TRIMETHOPRIM [Concomitant]
     Indication: URINARY TRACT INFECTION
     Route: 065
  23. SOLIFENACIN SUCCINATE [Concomitant]
     Indication: BLADDER DISORDER
     Route: 065

REACTIONS (14)
  - ANAL HAEMORRHAGE [None]
  - ATRIAL FIBRILLATION [None]
  - BACK PAIN [None]
  - CONSTIPATION [None]
  - DEHYDRATION [None]
  - FEAR OF EATING [None]
  - HYPERTENSION [None]
  - NAUSEA [None]
  - OEDEMA [None]
  - PYREXIA [None]
  - RENAL FAILURE [None]
  - RENAL PAIN [None]
  - VOMITING [None]
  - WEIGHT INCREASED [None]
